FAERS Safety Report 7958092-9 (Version None)
Quarter: 2011Q4

REPORT INFORMATION
  Report Type: 
  Country: None (occurrence: None)
  Receive Date: 20111201
  Receipt Date: 20111117
  Transmission Date: 20120403
  Serious: Yes (Hospitalization)
  Sender: FDA-Public Use
  Company Number: AUR-APL-2011-05898

PATIENT
  Age: 48 Year
  Sex: Male

DRUGS (12)
  1. ALLOPURINOL [Concomitant]
  2. LOSARTAN POTASSIUM [Suspect]
     Indication: PRODUCT USED FOR UNKNOWN INDICATION
     Dosage: )100 MG)
     Dates: start: 20111001
  3. THYRAX (LEVOTHYROXINE) [Concomitant]
  4. LOPERAMIDE [Concomitant]
  5. AMLODIPINE BESYLATE [Suspect]
     Indication: PRODUCT USED FOR UNKNOWN INDICATION
     Dosage: (5 MG)
     Dates: start: 20111001
  6. THIAMINE HCL [Concomitant]
  7. PYRIDOXINE HYDROCHLORIDE [Concomitant]
  8. DICLOFENAC SODIUM [Concomitant]
  9. ATENOLOL [Suspect]
     Indication: PRODUCT USED FOR UNKNOWN INDICATION
     Dates: start: 20111001
  10. ALENDRONATE SODIUM [Concomitant]
  11. CALCIUM CARBONATE [Concomitant]
  12. OMEPRAZOLE [Concomitant]

REACTIONS (12)
  - ACCIDENTAL EXPOSURE [None]
  - SLEEP DISORDER [None]
  - CONVULSION [None]
  - FOAMING AT MOUTH [None]
  - FALL [None]
  - MUSCLE RIGIDITY [None]
  - UNRESPONSIVE TO STIMULI [None]
  - CORONARY ARTERY STENOSIS [None]
  - PALPITATIONS [None]
  - VOMITING [None]
  - VENTRICULAR FIBRILLATION [None]
  - MUSCLE SPASMS [None]
